FAERS Safety Report 7631184-X (Version None)
Quarter: 2011Q3

REPORT INFORMATION
  Report Type: 
  Country: None (occurrence: None)
  Receive Date: 20110715
  Receipt Date: 20110629
  Transmission Date: 20111222
  Serious: Yes (Hospitalization, Disabling, Other)
  Sender: FDA-Public Use
  Company Number: 2011P1006419

PATIENT
  Age: 41 Year
  Sex: Female
  Weight: 42.1845 kg

DRUGS (7)
  1. BIRTH CONTROL [Concomitant]
  2. LAMOTRIGINE [Suspect]
     Indication: SENSORY DISTURBANCE
     Dosage: SEE IMAGE
     Route: 048
     Dates: start: 20110422
  3. LAMOTRIGINE [Suspect]
     Indication: SENSORY DISTURBANCE
     Dosage: SEE IMAGE
     Route: 048
     Dates: start: 20110201, end: 20110421
  4. LAMOTRIGINE [Suspect]
     Indication: SENSORY DISTURBANCE
     Dosage: SEE IMAGE
     Route: 048
     Dates: start: 20081001, end: 20110201
  5. EFFEXOR [Concomitant]
  6. VALIUM [Concomitant]
  7. PILLS [Concomitant]

REACTIONS (13)
  - SENSORY DISTURBANCE [None]
  - LYMPHADENOPATHY [None]
  - CHILLS [None]
  - MUSCULAR WEAKNESS [None]
  - MYALGIA [None]
  - TREMOR [None]
  - ANXIETY [None]
  - DEPRESSION [None]
  - SUICIDAL IDEATION [None]
  - PANIC ATTACK [None]
  - INCORRECT DOSE ADMINISTERED [None]
  - PANIC DISORDER [None]
  - WEIGHT DECREASED [None]
